FAERS Safety Report 15259943 (Version 8)
Quarter: 2018Q4

REPORT INFORMATION
  Report Type: Spontaneous
  Country: US (occurrence: US)
  Receive Date: 20180809
  Receipt Date: 20181112
  Transmission Date: 20190204
  Serious: Yes (Other)
  Sender: FDA-Public Use
  Company Number: US-SA-2018SA216489

PATIENT
  Age: 64 Year
  Sex: Male
  Weight: 74 kg

DRUGS (5)
  1. SYNTHROID [Concomitant]
     Active Substance: LEVOTHYROXINE SODIUM
     Indication: HYPOTHYROIDISM
     Dosage: 200MCG
     Dates: start: 20090707
  2. APIDRA [Concomitant]
     Active Substance: INSULIN GLULISINE
     Indication: TYPE 1 DIABETES MELLITUS
     Dosage: 6-8 U WITH MEAL
     Dates: start: 20140311
  3. CIALIS [Concomitant]
     Active Substance: TADALAFIL
     Dosage: 10 MG, UNK
     Route: 065
     Dates: start: 20150529
  4. TOUJEO [Suspect]
     Active Substance: INSULIN GLARGINE
     Indication: DIABETES MELLITUS
     Dosage: 20 U, QD
     Route: 065
     Dates: start: 20171201, end: 20180515
  5. ASPIRINE [Concomitant]
     Active Substance: ASPIRIN
     Dosage: 81 MG, UNK
     Route: 065
     Dates: start: 20171110

REACTIONS (3)
  - Blood glucose fluctuation [Recovered/Resolved]
  - Drug ineffective [Unknown]
  - Diabetes mellitus inadequate control [Recovered/Resolved]

NARRATIVE: CASE EVENT DATE: 20180601
